FAERS Safety Report 10384137 (Version 2)
Quarter: 2014Q4

REPORT INFORMATION
  Report Type: Spontaneous
  Country: US (occurrence: US)
  Receive Date: 20140814
  Receipt Date: 20141001
  Transmission Date: 20150528
  Serious: Yes (Other)
  Sender: FDA-Public Use
  Company Number: US-PFIZER INC-2014222648

PATIENT
  Age: 80 Year
  Sex: Female

DRUGS (1)
  1. CORTISONE [Suspect]
     Active Substance: CORTISONE\HYDROCORTISONE
     Indication: ARTHROPATHY
     Dosage: UNK

REACTIONS (1)
  - Drug ineffective [Unknown]
